FAERS Safety Report 4369504-4 (Version None)
Quarter: 2004Q2

REPORT INFORMATION
  Report Type: 
  Country: None (occurrence: None)
  Receive Date: 20040603
  Receipt Date: 20040423
  Transmission Date: 20050107
  Serious: Yes (Disabling)
  Sender: FDA-Public Use
  Company Number: 200411517JP

PATIENT
  Age: 1 Year
  Sex: Male
  Weight: 10.9 kg

DRUGS (8)
  1. CLAFORAN [Suspect]
     Indication: MENINGITIS
     Route: 042
     Dates: start: 20031121, end: 20031206
  2. CARBENIN [Suspect]
     Indication: MENINGITIS
     Route: 042
     Dates: start: 20031205, end: 20031206
  3. DECADRON [Concomitant]
     Indication: BRAIN OEDEMA
     Route: 042
     Dates: start: 20031121, end: 20031125
  4. DECADRON [Concomitant]
     Indication: DEAFNESS
     Route: 042
     Dates: start: 20031121, end: 20031125
  5. DECADRON [Concomitant]
     Indication: PROPHYLAXIS
     Route: 042
     Dates: start: 20031121, end: 20031125
  6. WAKOBITAL [Concomitant]
     Indication: CONVULSION
     Route: 054
     Dates: start: 20031121, end: 20031123
  7. GLYCEOL [Concomitant]
     Indication: BRAIN OEDEMA
     Route: 042
     Dates: start: 20031121, end: 20031122
  8. VICCILLIN [Concomitant]
     Indication: MENINGITIS
     Route: 042
     Dates: start: 20031121, end: 20031122

REACTIONS (22)
  - ALANINE AMINOTRANSFERASE INCREASED [None]
  - ANAEMIA [None]
  - ASPARTATE AMINOTRANSFERASE INCREASED [None]
  - BLOOD LACTATE DEHYDROGENASE INCREASED [None]
  - CONDITION AGGRAVATED [None]
  - DEPRESSED LEVEL OF CONSCIOUSNESS [None]
  - DISEASE RECURRENCE [None]
  - DISSEMINATED INTRAVASCULAR COAGULATION [None]
  - DRUG HYPERSENSITIVITY [None]
  - DYSSTASIA [None]
  - ELECTROENCEPHALOGRAM ABNORMAL [None]
  - GENERALISED ERYTHEMA [None]
  - GENERALISED OEDEMA [None]
  - HAEMATEMESIS [None]
  - HAEMORRHAGE [None]
  - HEPATIC FUNCTION ABNORMAL [None]
  - LYMPHOCYTE STIMULATION TEST POSITIVE [None]
  - MENINGITIS HAEMOPHILUS [None]
  - NERVE INJURY [None]
  - NERVOUS SYSTEM DISORDER [None]
  - SPASTIC PARALYSIS [None]
  - SPEECH DISORDER [None]
